FAERS Safety Report 7617688-4 (Version None)
Quarter: 2011Q3

REPORT INFORMATION
  Report Type: 
  Country: None (occurrence: None)
  Receive Date: 20110718
  Receipt Date: 20110706
  Transmission Date: 20111222
  Serious: Yes (Hospitalization, Other)
  Sender: FDA-Public Use
  Company Number: PHHY2011PT45762

PATIENT
  Age: 62 Year
  Sex: Male

DRUGS (1)
  1. AMOXICILLIN [Suspect]
     Dosage: UNK

REACTIONS (4)
  - OVERLAP SYNDROME [None]
  - EYE DISORDER [None]
  - SKIN HYPOPIGMENTATION [None]
  - ESCHERICHIA SEPSIS [None]
